FAERS Safety Report 18191627 (Version 2)
Quarter: 2020Q3

REPORT INFORMATION
  Report Type: Spontaneous
  Country: FR (occurrence: FR)
  Receive Date: 20200825
  Receipt Date: 20200918
  Transmission Date: 20201103
  Serious: Yes (Hospitalization)
  Sender: FDA-Public Use
  Company Number: FR-ACCORD-196727

PATIENT
  Age: 51 Year
  Sex: Female

DRUGS (24)
  1. CEFEPIME [Concomitant]
     Active Substance: CEFEPIME HYDROCHLORIDE
     Route: 042
     Dates: start: 20200401, end: 20200407
  2. NEFOPAM [Concomitant]
     Active Substance: NEFOPAM
     Dates: start: 20200404, end: 20200409
  3. CYTARABINE/CYTARABINE HYDROCHLORIDE/CYTARABINE OCFOSFATE [Concomitant]
     Active Substance: CYTARABINE
     Indication: ACUTE MYELOID LEUKAEMIA
     Route: 037
     Dates: start: 20200421
  4. LINEZOLID. [Concomitant]
     Active Substance: LINEZOLID
     Dates: start: 20200409, end: 20200412
  5. MORPHINE [Concomitant]
     Active Substance: MORPHINE
     Dates: start: 20200409
  6. CYCLOPHOSPHAMIDE/CYCLOPHOSPHAMIDE MONOHYDRATE [Concomitant]
     Active Substance: CYCLOPHOSPHAMIDE
     Route: 042
     Dates: start: 201612, end: 201702
  7. METHOTREXATE. [Suspect]
     Active Substance: METHOTREXATE
     Indication: ACUTE MYELOID LEUKAEMIA
     Route: 037
     Dates: start: 20200326
  8. CYTARABINE/CYTARABINE HYDROCHLORIDE/CYTARABINE OCFOSFATE [Suspect]
     Active Substance: CYTARABINE
     Indication: ACUTE MYELOID LEUKAEMIA
     Dosage: 200 MG/ SQ M FROM D1 TO D7
     Route: 042
     Dates: start: 20200326, end: 20200401
  9. AMOXICILLIN. [Concomitant]
     Active Substance: AMOXICILLIN
     Dates: start: 20200418, end: 20200423
  10. PIPERACILLIN SODIUM/TAZOBACTAM SODIUM [Concomitant]
     Active Substance: PIPERACILLIN SODIUM\TAZOBACTAM SODIUM
     Dates: start: 20200409, end: 20200418
  11. FLUOROURACIL. [Concomitant]
     Active Substance: FLUOROURACIL
     Route: 042
     Dates: start: 201612, end: 201702
  12. IDARUBICIN [Suspect]
     Active Substance: IDARUBICIN
     Indication: ACUTE MYELOID LEUKAEMIA
     Dosage: 9 MG/ SQ M FROM D1 TO D5
     Route: 042
     Dates: start: 20200326, end: 20200330
  13. X PREP [Concomitant]
     Dates: start: 20200408, end: 20200409
  14. PROSTIGMINE [Concomitant]
     Dosage: STRENGTH: 0.5 MG/1 ML
     Dates: start: 20200425
  15. VANCOMYCIN [Concomitant]
     Active Substance: VANCOMYCIN
     Dates: start: 20200415, end: 20200418
  16. FLAGYL [Concomitant]
     Active Substance: METRONIDAZOLE\METRONIDAZOLE HYDROCHLORIDE
     Route: 042
     Dates: start: 20200401, end: 20200407
  17. GENTAMICIN. [Concomitant]
     Active Substance: GENTAMICIN
     Dates: start: 20200412, end: 20200413
  18. PACLITAXEL. [Concomitant]
     Active Substance: PACLITAXEL
     Route: 042
     Dates: start: 2017, end: 2017
  19. MEROPENEM. [Concomitant]
     Active Substance: MEROPENEM
     Dates: start: 20200423, end: 20200430
  20. EPIRUBICIN [Concomitant]
     Active Substance: EPIRUBICIN
     Route: 042
     Dates: start: 201612, end: 201702
  21. DEPO?MEDROL [Concomitant]
     Active Substance: METHYLPREDNISOLONE ACETATE
     Indication: ACUTE MYELOID LEUKAEMIA
     Route: 037
     Dates: start: 20200421
  22. PIPERACILLIN SODIUM/TAZOBACTAM SODIUM [Concomitant]
     Active Substance: PIPERACILLIN SODIUM\TAZOBACTAM SODIUM
     Route: 042
     Dates: start: 20200323, end: 20200330
  23. MIDOSTAURIN [Concomitant]
     Active Substance: MIDOSTAURIN
     Dates: start: 20200404, end: 20200413
  24. HERCEPTIN [Concomitant]
     Active Substance: TRASTUZUMAB
     Route: 042
     Dates: start: 2017, end: 2018

REACTIONS (1)
  - Autonomic nervous system imbalance [Not Recovered/Not Resolved]

NARRATIVE: CASE EVENT DATE: 20200406
